FAERS Safety Report 9194033 (Version 2)
Quarter: 2013Q2

REPORT INFORMATION
  Report Type: Spontaneous
  Country: BR (occurrence: BR)
  Receive Date: 20130327
  Receipt Date: 20130517
  Transmission Date: 20140414
  Serious: Yes (Other)
  Sender: FDA-Public Use
  Company Number: BR-PFIZER INC-2013092705

PATIENT
  Age: 58 Year
  Sex: Female
  Weight: 80 kg

DRUGS (4)
  1. ZOLOFT [Suspect]
     Dosage: 1 TABLET (50 MG), 2X/DAY
     Route: 048
     Dates: start: 20121127, end: 20130510
  2. PREGABALIN [Suspect]
     Dosage: STRENGTH 75MG
  3. EFEXOR XR [Suspect]
     Dosage: STRENGTH 75MG
  4. DALMADORM [Concomitant]
     Dosage: UNK

REACTIONS (7)
  - Carpal tunnel syndrome [Not Recovered/Not Resolved]
  - Depression [Not Recovered/Not Resolved]
  - Hypoaesthesia [Not Recovered/Not Resolved]
  - Feeling abnormal [Not Recovered/Not Resolved]
  - Weight increased [Not Recovered/Not Resolved]
  - Spinal pain [Not Recovered/Not Resolved]
  - Abdominal distension [Not Recovered/Not Resolved]
